FAERS Safety Report 5015472-1 (Version None)
Quarter: 2006Q2

REPORT INFORMATION
  Report Type: 
  Country: None (occurrence: None)
  Receive Date: 20060530
  Receipt Date: 20060530
  Transmission Date: 20061013
  Serious: Yes (Death)
  Sender: FDA-Public Use
  Company Number: None

PATIENT
  Age: 80 Year
  Sex: Female

DRUGS (1)
  1. LOVENOX [Suspect]
     Indication: PULMONARY EMBOLISM
     Dosage: 60MG SQ Q12H
     Route: 058
     Dates: start: 20050403

REACTIONS (9)
  - ANAEMIA [None]
  - CONTUSION [None]
  - HAEMATOCRIT DECREASED [None]
  - HYPOTENSION [None]
  - INTERNATIONAL NORMALISED RATIO INCREASED [None]
  - PLATELET COUNT DECREASED [None]
  - RESPIRATORY DISTRESS [None]
  - RETROPERITONEAL HAEMORRHAGE [None]
  - VOMITING [None]
